FAERS Safety Report 11451129 (Version 1)
Quarter: 2015Q3

REPORT INFORMATION
  Report Type: Spontaneous
  Country: US (occurrence: None)
  Receive Date: 20150902
  Receipt Date: 20150902
  Transmission Date: 20151125
  Serious: Yes (Disabling, Other)
  Sender: FDA-Public Use
  Company Number: None

PATIENT
  Age: 58 Year
  Sex: Male
  Weight: 83.92 kg

DRUGS (3)
  1. LORAZEPAM 2 MG RX# C798629 #5 057 MYLAN 777(LORAZEPAM 2MG) [Suspect]
     Active Substance: LORAZEPAM
     Indication: SLEEP DISORDER
     Route: 048
     Dates: start: 20150609, end: 20150814
  2. CLONAPIN [Concomitant]
     Active Substance: CLONAZEPAM
  3. VICODIN [Suspect]
     Active Substance: ACETAMINOPHEN\HYDROCODONE BITARTRATE

REACTIONS (3)
  - Pharyngeal oedema [None]
  - Hypoaesthesia [None]
  - Hypoaesthesia oral [None]

NARRATIVE: CASE EVENT DATE: 20150621
